FAERS Safety Report 11899500 (Version 1)
Quarter: 2016Q1

REPORT INFORMATION
  Report Type: Spontaneous
  Country: US (occurrence: US)
  Receive Date: 20160108
  Receipt Date: 20160108
  Transmission Date: 20160526
  Serious: Yes (Hospitalization)
  Sender: FDA-Public Use
  Company Number: US-SMITH AND NEPHEW, INC-2015SMT00694

PATIENT
  Sex: Male
  Weight: 86.17 kg

DRUGS (2)
  1. UNSPECIFIED BLOOD PRESSURE MEDICATION(S) [Concomitant]
     Dosage: UNK
  2. REGRANEX [Suspect]
     Active Substance: BECAPLERMIN
     Indication: WOUND
     Dosage: UNK
     Route: 061
     Dates: start: 201511, end: 20151223

REACTIONS (2)
  - Off label use [Unknown]
  - Toe amputation [Recovered/Resolved with Sequelae]

NARRATIVE: CASE EVENT DATE: 2015
